FAERS Safety Report 26113768 (Version 1)
Quarter: 2025Q4

REPORT INFORMATION
  Report Type: Spontaneous
  Country: BR (occurrence: BR)
  Receive Date: 20251202
  Receipt Date: 20251202
  Transmission Date: 20260118
  Serious: Yes (Other)
  Sender: MYLAN
  Company Number: BR-MYLANLABS-2025M1103123

PATIENT
  Age: 78 Year
  Sex: Male

DRUGS (24)
  1. VENLAFAXINE [Suspect]
     Active Substance: VENLAFAXINE HYDROCHLORIDE
     Indication: Parkinson^s disease
     Dosage: 75 MILLIGRAM, QD
  2. VENLAFAXINE [Suspect]
     Active Substance: VENLAFAXINE HYDROCHLORIDE
     Indication: Antidepressant therapy
     Dosage: 75 MILLIGRAM, QD
  3. VENLAFAXINE [Suspect]
     Active Substance: VENLAFAXINE HYDROCHLORIDE
     Dosage: 75 MILLIGRAM, QD
     Route: 065
  4. VENLAFAXINE [Suspect]
     Active Substance: VENLAFAXINE HYDROCHLORIDE
     Dosage: 75 MILLIGRAM, QD
     Route: 065
  5. VENLAFAXINE [Suspect]
     Active Substance: VENLAFAXINE HYDROCHLORIDE
     Dosage: 225 MILLIGRAM, QD
  6. VENLAFAXINE [Suspect]
     Active Substance: VENLAFAXINE HYDROCHLORIDE
     Dosage: 225 MILLIGRAM, QD
  7. VENLAFAXINE [Suspect]
     Active Substance: VENLAFAXINE HYDROCHLORIDE
     Dosage: 225 MILLIGRAM, QD
     Route: 065
  8. VENLAFAXINE [Suspect]
     Active Substance: VENLAFAXINE HYDROCHLORIDE
     Dosage: 225 MILLIGRAM, QD
     Route: 065
  9. VENLAFAXINE [Suspect]
     Active Substance: VENLAFAXINE HYDROCHLORIDE
     Dosage: 150 MILLIGRAM, QD
  10. VENLAFAXINE [Suspect]
     Active Substance: VENLAFAXINE HYDROCHLORIDE
     Dosage: 150 MILLIGRAM, QD
     Route: 065
  11. VENLAFAXINE [Suspect]
     Active Substance: VENLAFAXINE HYDROCHLORIDE
     Dosage: 150 MILLIGRAM, QD
  12. VENLAFAXINE [Suspect]
     Active Substance: VENLAFAXINE HYDROCHLORIDE
     Dosage: 150 MILLIGRAM, QD
     Route: 065
  13. MIRTAZAPINE [Suspect]
     Active Substance: MIRTAZAPINE
     Indication: Parkinson^s disease
     Dosage: 45 MILLIGRAM, QD
  14. MIRTAZAPINE [Suspect]
     Active Substance: MIRTAZAPINE
     Indication: Antidepressant therapy
     Dosage: 45 MILLIGRAM, QD
     Route: 065
  15. MIRTAZAPINE [Suspect]
     Active Substance: MIRTAZAPINE
     Dosage: 45 MILLIGRAM, QD
     Route: 065
  16. MIRTAZAPINE [Suspect]
     Active Substance: MIRTAZAPINE
     Dosage: 45 MILLIGRAM, QD
  17. LEVODOPA [Concomitant]
     Active Substance: LEVODOPA
     Indication: Parkinson^s disease
     Dosage: UNK
  18. LEVODOPA [Concomitant]
     Active Substance: LEVODOPA
     Dosage: UNK
  19. LEVODOPA [Concomitant]
     Active Substance: LEVODOPA
     Dosage: UNK
     Route: 065
  20. LEVODOPA [Concomitant]
     Active Substance: LEVODOPA
     Dosage: UNK
     Route: 065
  21. LEVODOPA [Concomitant]
     Active Substance: LEVODOPA
     Dosage: UNK, DOSE REDUCED
  22. LEVODOPA [Concomitant]
     Active Substance: LEVODOPA
     Dosage: UNK, DOSE REDUCED
  23. LEVODOPA [Concomitant]
     Active Substance: LEVODOPA
     Dosage: UNK, DOSE REDUCED
     Route: 065
  24. LEVODOPA [Concomitant]
     Active Substance: LEVODOPA
     Dosage: UNK, DOSE REDUCED
     Route: 065

REACTIONS (3)
  - Dyskinesia [Recovering/Resolving]
  - Oculogyric crisis [Recovering/Resolving]
  - Condition aggravated [Recovering/Resolving]
